FAERS Safety Report 6148844-2 (Version None)
Quarter: 2009Q2

REPORT INFORMATION
  Report Type: 
  Country: None (occurrence: None)
  Receive Date: 20090408
  Receipt Date: 20090402
  Transmission Date: 20091009
  Serious: Yes (Hospitalization)
  Sender: FDA-Public Use
  Company Number: US-MERCK-0812USA01744

PATIENT
  Age: 67 Year
  Sex: Female
  Weight: 49 kg

DRUGS (2)
  1. FOSAMAX [Suspect]
     Indication: OSTEOPOROSIS
     Route: 048
     Dates: start: 19970512, end: 20080214
  2. FOSAMAX [Suspect]
     Route: 048
     Dates: start: 19960501, end: 19960520

REACTIONS (28)
  - ABSCESS [None]
  - AORTIC ARTERIOSCLEROSIS [None]
  - AORTIC VALVE INCOMPETENCE [None]
  - ARTHRITIS [None]
  - ATROPHY [None]
  - CATARACT [None]
  - CELLULITIS [None]
  - COUGH [None]
  - DENTAL CARIES [None]
  - DRY MOUTH [None]
  - DYSPNOEA [None]
  - EXTRASYSTOLES [None]
  - GINGIVAL BLEEDING [None]
  - GINGIVAL DISORDER [None]
  - HYPOTHYROIDISM [None]
  - INSOMNIA [None]
  - JOINT SWELLING [None]
  - LIMB INJURY [None]
  - MITRAL VALVE CALCIFICATION [None]
  - MUSCULOSKELETAL DISORDER [None]
  - OPEN WOUND [None]
  - PAIN IN EXTREMITY [None]
  - PERIODONTAL DISEASE [None]
  - RESORPTION BONE INCREASED [None]
  - STOMATITIS [None]
  - THYROID DISORDER [None]
  - TOOTH LOSS [None]
  - VENTRICULAR EXTRASYSTOLES [None]
